FAERS Safety Report 26111647 (Version 1)
Quarter: 2025Q4

REPORT INFORMATION
  Report Type: Spontaneous
  Country: JP (occurrence: JP)
  Receive Date: 20251202
  Receipt Date: 20251202
  Transmission Date: 20260118
  Serious: Yes (Other)
  Sender: SANDOZ
  Company Number: JP-SANDOZ INC.-SDZ2025JP089818

PATIENT
  Age: 68 Year
  Sex: Male

DRUGS (9)
  1. AMIVANTAMAB [Suspect]
     Active Substance: AMIVANTAMAB
     Indication: Non-small cell lung cancer
     Dosage: UNK, COURSE 1
     Route: 065
  2. AMIVANTAMAB [Suspect]
     Active Substance: AMIVANTAMAB
     Dosage: UNK, COURSE 2
     Route: 065
  3. AMIVANTAMAB [Suspect]
     Active Substance: AMIVANTAMAB
     Dosage: UNK, REDUCED FROM COURSE 3
     Route: 065
  4. CARBOPLATIN [Suspect]
     Active Substance: CARBOPLATIN
     Indication: Non-small cell lung cancer
     Dosage: UNK, COURSE 1
     Route: 065
  5. CARBOPLATIN [Suspect]
     Active Substance: CARBOPLATIN
     Dosage: UNK, COURSE 2
     Route: 065
  6. CARBOPLATIN [Suspect]
     Active Substance: CARBOPLATIN
     Dosage: UNK, COURSE 3
     Route: 065
  7. PEMETREXED [Suspect]
     Active Substance: PEMETREXED
     Indication: Non-small cell lung cancer
     Dosage: UNK, COURSE 1
     Route: 065
  8. PEMETREXED [Suspect]
     Active Substance: PEMETREXED
     Dosage: UNK, COURSE 2
     Route: 065
  9. PEMETREXED [Suspect]
     Active Substance: PEMETREXED
     Dosage: UNK, COURSE 3
     Route: 065

REACTIONS (1)
  - Renal infarct [Recovering/Resolving]
